FAERS Safety Report 4582644-X (Version None)
Quarter: 2005Q1

REPORT INFORMATION
  Report Type: 
  Country: None (occurrence: None)
  Receive Date: 20050215
  Receipt Date: 20050204
  Transmission Date: 20050727
  Serious: Yes (Death, Hospitalization)
  Sender: FDA-Public Use
  Company Number: FR-JNJFOC-20050201381

PATIENT
  Age: 82 Year
  Sex: Female

DRUGS (4)
  1. REMINYL [Suspect]
     Route: 049
  2. REMINYL [Suspect]
     Route: 049
  3. TAHOR [Concomitant]
     Route: 065
  4. OMEPRAZOLE [Concomitant]
     Route: 065

REACTIONS (3)
  - ATRIOVENTRICULAR BLOCK COMPLETE [None]
  - BRADYCARDIA [None]
  - DEATH [None]
